FAERS Safety Report 23981207 (Version 1)
Quarter: 2024Q2

REPORT INFORMATION
  Report Type: Spontaneous
  Country: JP (occurrence: JP)
  Receive Date: 20240617
  Receipt Date: 20240617
  Transmission Date: 20240716
  Serious: Yes (Death)
  Sender: FDA-Public Use
  Company Number: JP-CHEPLA-2024007526

PATIENT
  Age: 6 Decade
  Sex: Male

DRUGS (1)
  1. CAPECITABINE [Suspect]
     Active Substance: CAPECITABINE
     Indication: Rectal adenocarcinoma
     Dosage: STRENGTH: 300 (UNITS NOT REPORTED)
     Dates: start: 202308

REACTIONS (3)
  - Plasma cell myeloma [Fatal]
  - Primary amyloidosis [Fatal]
  - Hepatomegaly [Unknown]
